FAERS Safety Report 5444675-7 (Version None)
Quarter: 2007Q3

REPORT INFORMATION
  Report Type: 
  Country: None (occurrence: None)
  Receive Date: 20070906
  Receipt Date: 20070125
  Transmission Date: 20080115
  Serious: No
  Sender: FDA-Public Use
  Company Number: A0637035A

PATIENT

DRUGS (1)
  1. REQUIP [Suspect]
     Indication: RESTLESS LEGS SYNDROME
     Route: 048

REACTIONS (1)
  - RESTLESS LEGS SYNDROME [None]
